FAERS Safety Report 9739502 (Version 1)
Quarter: 2013Q4

REPORT INFORMATION
  Report Type: Spontaneous
  Country: US (occurrence: US)
  Receive Date: 20131209
  Receipt Date: 20131209
  Transmission Date: 20140711
  Serious: Yes (Other)
  Sender: FDA-Public Use
  Company Number: US-BAYER-2013-148703

PATIENT
  Age: 23 Year
  Sex: Female
  Weight: 54 kg

DRUGS (5)
  1. YAZ [Suspect]
  2. MEDROL [Concomitant]
     Dosage: 4 MG, UNK
     Dates: start: 20100608
  3. DARVOCET [Concomitant]
  4. VICODIN [Concomitant]
  5. CELEBREX [Concomitant]

REACTIONS (1)
  - Deep vein thrombosis [None]
